FAERS Safety Report 6044466-2 (Version None)
Quarter: 2009Q1

REPORT INFORMATION
  Report Type: 
  Country: None (occurrence: None)
  Receive Date: 20090114
  Receipt Date: 20090114
  Transmission Date: 20090719
  Serious: Yes (Hospitalization)
  Sender: FDA-Public Use
  Company Number: None

PATIENT
  Age: 16 Year
  Sex: Male
  Weight: 47 kg

DRUGS (13)
  1. CISPLATIN [Suspect]
     Indication: NASOPHARYNGEAL CANCER
     Dosage: 146 MG CYC IV
     Route: 042
  2. RADIATION THERAPY [Suspect]
     Indication: NASOPHARYNGEAL CANCER
  3. CIPROFLOXACIN [Concomitant]
  4. COTRIM [Concomitant]
  5. METOCLOPRAMIDE [Concomitant]
  6. DEXAMETHASONE [Concomitant]
  7. DEXTROSE 5% AND SODIUM CHLORIDE 0.45% IN PLASTIC CONTAINER [Concomitant]
  8. POTASSIUIM CHLORIDE [Concomitant]
  9. CELECOXIB [Concomitant]
  10. MANNITOL [Concomitant]
  11. DIPHENHYDRAMIN [Concomitant]
  12. TRAMADOL HCL [Concomitant]
  13. MEFENAMIC ACID [Concomitant]

REACTIONS (13)
  - ATAXIA [None]
  - BLOOD MAGNESIUM DECREASED [None]
  - BLOOD POTASSIUM DECREASED [None]
  - DECREASED APPETITE [None]
  - DEHYDRATION [None]
  - HEADACHE [None]
  - MALIGNANT NEOPLASM PROGRESSION [None]
  - METASTASES TO CENTRAL NERVOUS SYSTEM [None]
  - NAUSEA [None]
  - NYSTAGMUS [None]
  - ODYNOPHAGIA [None]
  - UPPER RESPIRATORY TRACT INFECTION [None]
  - VOMITING [None]
